FAERS Safety Report 16574820 (Version 1)
Quarter: 2019Q3

REPORT INFORMATION
  Report Type: Spontaneous
  Country: FR (occurrence: FR)
  Receive Date: 20190715
  Receipt Date: 20190715
  Transmission Date: 20191004
  Serious: Yes (Death)
  Sender: FDA-Public Use
  Company Number: FR-BAUSCH-BL-2019-019686

PATIENT
  Age: 34 Year
  Sex: Male
  Weight: 86 kg

DRUGS (15)
  1. AMMONAPS [Concomitant]
     Active Substance: SODIUM PHENYLBUTYRATE
     Indication: COMA
     Route: 042
     Dates: start: 20180617, end: 20180623
  2. FLUDROCORTISONE [Concomitant]
     Active Substance: FLUDROCORTISONE
     Indication: PRODUCT USED FOR UNKNOWN INDICATION
  3. L-ARGININE [Concomitant]
     Active Substance: ARGININE
     Indication: COMA
     Dates: start: 20180617, end: 20180623
  4. VANCOMYCINE [Concomitant]
     Active Substance: VANCOMYCIN
     Indication: PRODUCT USED FOR UNKNOWN INDICATION
  5. FORTUM [Concomitant]
     Active Substance: CEFTAZIDIME
     Indication: PRODUCT USED FOR UNKNOWN INDICATION
  6. HYDROCORTISONE. [Concomitant]
     Active Substance: HYDROCORTISONE
     Indication: PRODUCT USED FOR UNKNOWN INDICATION
  7. MORPHINE [Concomitant]
     Active Substance: MORPHINE
     Indication: PRODUCT USED FOR UNKNOWN INDICATION
  8. MIDAZOLAM [Concomitant]
     Active Substance: MIDAZOLAM HYDROCHLORIDE
     Indication: PRODUCT USED FOR UNKNOWN INDICATION
  9. NORADRENALINE [Concomitant]
     Active Substance: NOREPINEPHRINE
     Indication: PRODUCT USED FOR UNKNOWN INDICATION
  10. BIOTINE [BIOTIN] [Concomitant]
     Active Substance: BIOTIN
     Indication: COMA
     Dates: start: 20180618, end: 20180623
  11. CARNITINE [Concomitant]
     Active Substance: CARNITINE
     Indication: COMA
     Dates: start: 20180617, end: 20180623
  12. AMMONUL [Suspect]
     Active Substance: SODIUM BENZOATE\SODIUM PHENYLACETATE
     Indication: COMA
     Dosage: CENTRAL CATHETER
     Route: 042
     Dates: start: 20180617, end: 20180622
  13. VFEND [Concomitant]
     Active Substance: VORICONAZOLE
     Indication: PRODUCT USED FOR UNKNOWN INDICATION
  14. NIMBEZ [Concomitant]
     Indication: PRODUCT USED FOR UNKNOWN INDICATION
  15. VITAMIN B12 [Concomitant]
     Active Substance: CYANOCOBALAMIN
     Indication: COMA
     Dates: start: 20180618, end: 20180623

REACTIONS (2)
  - Leukaemia [Fatal]
  - Hyperammonaemia [Fatal]

NARRATIVE: CASE EVENT DATE: 20180626
